FAERS Safety Report 10419537 (Version 2)
Quarter: 2014Q3

REPORT INFORMATION
  Report Type: Spontaneous
  Country: US (occurrence: None)
  Receive Date: 20140625
  Receipt Date: 20140815
  Transmission Date: 20150326
  Serious: No
  Sender: FDA-Public Use
  Company Number: A-NJ2014-95533

PATIENT
  Age: 34 Year
  Sex: Female

DRUGS (4)
  1. COUMADIN [Concomitant]
     Active Substance: WARFARIN SODIUM
  2. ADCIRCA [Concomitant]
     Active Substance: TADALAFIL
  3. REMODULIN (TREPROSTINIL SODIUM) [Suspect]
     Active Substance: TREPROSTINIL
     Dosage: 71 NG/KG, PER MIN, INTRAVENOUS
     Route: 042
     Dates: start: 20131211
  4. OPSUMIT [Suspect]
     Active Substance: MACITENTAN
     Indication: COR PULMONALE CHRONIC
     Route: 048
     Dates: start: 20140129

REACTIONS (5)
  - Oedema peripheral [None]
  - Local swelling [None]
  - Catheter site pain [None]
  - Catheter site erythema [None]
  - Catheter site swelling [None]
